FAERS Safety Report 7145421-1 (Version None)
Quarter: 2010Q4

REPORT INFORMATION
  Report Type: 
  Country: None (occurrence: None)
  Receive Date: 20101208
  Receipt Date: 20101125
  Transmission Date: 20110411
  Serious: Yes (Hospitalization, Other)
  Sender: FDA-Public Use
  Company Number: PHHY2009JP48659

PATIENT
  Sex: Female
  Weight: 98 kg

DRUGS (29)
  1. DIOVAN [Suspect]
     Dosage: 80 MG PER DAY
     Route: 048
     Dates: start: 20081001, end: 20081028
  2. DIOVAN [Suspect]
     Dosage: 120 MG PER DAY
     Route: 048
     Dates: start: 20081029, end: 20081125
  3. DIOVAN [Suspect]
     Dosage: 160 MG PER DAY
     Route: 048
     Dates: start: 20081126, end: 20100801
  4. NORVASC [Concomitant]
     Indication: HYPERTENSION
     Dosage: 10 MG, UNK
     Route: 048
     Dates: start: 20080806
  5. BLOPRESS [Concomitant]
     Indication: HYPERTENSION
     Dosage: 12 MG, UNK
     Route: 048
     Dates: start: 20080806, end: 20080930
  6. DIART [Concomitant]
     Indication: HYPERTENSION
     Dosage: 30 MG, UNK
     Route: 048
     Dates: start: 20080806
  7. DIART [Concomitant]
     Dosage: 30 MG, UNK
     Route: 048
  8. DIART [Concomitant]
     Dosage: 60 MG, UNK
     Route: 048
  9. CARDENALIN [Concomitant]
     Indication: HYPERTENSION
     Dosage: 4 MG, UNK
     Route: 048
     Dates: start: 20080806
  10. MAINTATE [Concomitant]
     Indication: HYPERTENSION
     Dosage: 2.5 MG, UNK
     Route: 048
     Dates: start: 20090107
  11. NATRIX [Concomitant]
     Indication: HYPERTENSION
     Dosage: 1 MG, UNK
     Route: 048
     Dates: start: 20090204, end: 20090812
  12. ADALAT CC [Concomitant]
     Indication: HYPERTENSION
     Dosage: 20 MG, UNK
     Route: 048
     Dates: start: 20090304, end: 20090401
  13. PANALDINE [Concomitant]
     Dosage: 200 MG, UNK
     Route: 048
     Dates: start: 20080806
  14. ASPIRIN [Concomitant]
     Dosage: 100 MG, UNK
     Route: 048
     Dates: start: 20080806
  15. GASTER D [Concomitant]
     Dosage: 20 MG, UNK
     Route: 048
     Dates: start: 20080806
  16. NOVORAPID [Concomitant]
     Dosage: UNK
     Route: 058
     Dates: start: 20080806
  17. LEVEMIR [Concomitant]
     Dosage: UNK
     Route: 058
     Dates: start: 20080806, end: 20090303
  18. BENECID [Concomitant]
     Dosage: 500 MG, UNK
     Route: 048
     Dates: start: 20080806
  19. LIPITOR [Concomitant]
     Dosage: 20 MG, UNK
     Route: 048
     Dates: start: 20080806
  20. LIPITOR [Concomitant]
     Dosage: 5 MG, UNK
     Route: 048
  21. ZETIA [Concomitant]
     Dosage: 10 MG, UNK
     Route: 048
     Dates: start: 20080806
  22. ALLELOCK [Concomitant]
     Dosage: 5 MG, UNK
     Route: 048
     Dates: start: 20090304, end: 20090501
  23. LANTUS [Concomitant]
     Dosage: UNK
     Route: 058
     Dates: start: 20090304
  24. ZYLORIC [Concomitant]
     Dosage: 0.5 DF, UNK
     Route: 048
  25. HERBESSER [Concomitant]
     Dosage: 30 MG, UNK
     Route: 048
  26. FRANDOL [Concomitant]
  27. LASIX [Concomitant]
     Dosage: 2 DF IN THE MORNING AND AT 2 DF IN THE NOON DAILY
     Dates: start: 20091202
  28. ATELEC [Concomitant]
     Dosage: UNK
     Dates: start: 20100303
  29. ALLEGRA [Concomitant]

REACTIONS (12)
  - BLOOD PRESSURE DIASTOLIC DECREASED [None]
  - BLOOD PRESSURE SYSTOLIC INCREASED [None]
  - COUGH [None]
  - DIABETIC NEPHROPATHY [None]
  - GLYCOSYLATED HAEMOGLOBIN INCREASED [None]
  - HYPOAESTHESIA [None]
  - NEPHROGENIC ANAEMIA [None]
  - NEPHROTIC SYNDROME [None]
  - OEDEMA PERIPHERAL [None]
  - SWELLING [None]
  - URTICARIA [None]
  - WEIGHT INCREASED [None]
